FAERS Safety Report 9629729 (Version 3)
Quarter: 2014Q2

REPORT INFORMATION
  Report Type: Spontaneous
  Country: DE (occurrence: DE)
  Receive Date: 20131017
  Receipt Date: 20140403
  Transmission Date: 20141212
  Serious: Yes (Death, Other)
  Sender: FDA-Public Use
  Company Number: DE-ALEXION PHARMACEUTICALS INC.-A201302605

PATIENT
  Sex: 0

DRUGS (9)
  1. SOLIRIS 300MG [Suspect]
     Indication: HAEMOLYTIC URAEMIC SYNDROME
     Dosage: 900 MG
     Route: 042
     Dates: start: 201302, end: 201303
  2. SOLIRIS 300MG [Suspect]
     Dosage: 1200 MG
     Route: 042
     Dates: start: 201303
  3. SOLIRIS 300MG [Suspect]
     Dosage: 900 MG, QW
     Route: 042
     Dates: start: 20130301, end: 20130322
  4. SOLIRIS 300MG [Suspect]
     Dosage: 1200 MG, Q2W
     Route: 042
     Dates: start: 20130329, end: 201308
  5. SOLIRIS 300MG [Suspect]
     Dosage: 1200 MG, Q3W
     Route: 042
     Dates: start: 201308, end: 20130920
  6. ERYTHROPOIETIN ALPHA [Concomitant]
     Indication: NEPHROGENIC ANAEMIA
     Dosage: 10000 IE, Q2W
     Route: 058
     Dates: start: 201301
  7. AMLODIPINE [Concomitant]
     Indication: HYPERTENSION
     Dosage: 5 MG, BID
     Route: 048
     Dates: start: 201301
  8. BISOPROLOL [Concomitant]
     Indication: HYPERTENSION
     Dosage: 2.5 MG, BID
     Route: 048
     Dates: start: 201301
  9. LETROZOLE [Concomitant]
     Indication: BREAST CANCER
     Dosage: 2.5 MG, QD
     Route: 048
     Dates: start: 201306

REACTIONS (5)
  - Death [Fatal]
  - Arthritis reactive [Unknown]
  - C-reactive protein increased [Recovered/Resolved]
  - Carbohydrate antigen 15-3 increased [Recovering/Resolving]
  - Inappropriate schedule of drug administration [Recovered/Resolved]
